FAERS Safety Report 8170124 (Version 5)
Quarter: 2013Q2

REPORT INFORMATION
  Report Type: Spontaneous
  Country: US (occurrence: US)
  Receive Date: 20111005
  Receipt Date: 20130417
  Transmission Date: 20140414
  Serious: Yes (Other)
  Sender: FDA-Public Use
  Company Number: US-ASTRAZENECA-2011SE57985

PATIENT
  Age: 66 Year
  Sex: Female
  Weight: 61.2 kg

DRUGS (15)
  1. NEXIUM [Suspect]
     Indication: GASTROOESOPHAGEAL REFLUX DISEASE
     Route: 048
     Dates: start: 2009
  2. SEROQUEL [Suspect]
     Indication: DEPRESSION
     Route: 048
  3. SEROQUEL [Suspect]
     Indication: DEPRESSION
     Dosage: 300
     Route: 048
  4. SEROQUEL [Suspect]
     Indication: DEPRESSION
     Dosage: 400
     Route: 048
  5. SEROQUEL [Suspect]
     Indication: DEPRESSION
     Route: 048
     Dates: start: 2012
  6. SEROQUEL [Suspect]
     Indication: DEPRESSION
     Route: 048
     Dates: start: 2003, end: 2012
  7. SEROQUEL [Suspect]
     Indication: DEPRESSION
     Route: 048
  8. SEROQUEL [Suspect]
     Indication: DEPRESSION
     Route: 048
  9. SEROQUEL [Suspect]
     Indication: DEPRESSION
     Route: 048
  10. CRESTOR [Suspect]
     Indication: BLOOD CHOLESTEROL ABNORMAL
     Route: 048
     Dates: start: 2003
  11. PUBAR INHALER [Concomitant]
     Indication: ASTHMA
     Dosage: PRN
     Route: 055
  12. ADDERALL [Concomitant]
     Route: 048
  13. PROZAC [Concomitant]
     Indication: DEPRESSION
     Route: 048
  14. SYNTHROID [Concomitant]
     Indication: THYROID DISORDER
     Route: 048
  15. SINGULAIR [Concomitant]
     Indication: ASTHMA
     Dosage: DAILY
     Route: 048

REACTIONS (20)
  - Wrist fracture [Unknown]
  - Withdrawal syndrome [Unknown]
  - Aphagia [Unknown]
  - Anxiety [Unknown]
  - Weight increased [Not Recovered/Not Resolved]
  - Migraine [Not Recovered/Not Resolved]
  - Cold sweat [Not Recovered/Not Resolved]
  - Feeling abnormal [Unknown]
  - Mental disorder [Unknown]
  - Headache [Unknown]
  - Nausea [Unknown]
  - Abdominal pain upper [Unknown]
  - Insomnia [Unknown]
  - Agitation [Unknown]
  - Hyperhidrosis [Unknown]
  - Depression [Not Recovered/Not Resolved]
  - Malaise [Unknown]
  - Off label use [Unknown]
  - Drug prescribing error [Unknown]
  - Intentional drug misuse [Unknown]
